FAERS Safety Report 21620690 (Version 1)
Quarter: 2022Q4

REPORT INFORMATION
  Report Type: Spontaneous
  Country: US (occurrence: None)
  Receive Date: 20221118
  Receipt Date: 20221118
  Transmission Date: 20230112
  Serious: Yes (Death, Hospitalization)
  Sender: FDA-Public Use
  Company Number: None

PATIENT
  Age: 77 Year
  Sex: Male
  Weight: 129.8 kg

DRUGS (2)
  1. AZACITIDINE [Suspect]
     Active Substance: AZACITIDINE
     Dates: end: 20221025
  2. VENETOCLAX [Suspect]
     Active Substance: VENETOCLAX
     Dates: end: 20221018

REACTIONS (15)
  - Chills [None]
  - Dyspnoea [None]
  - Myalgia [None]
  - Pneumonia [None]
  - Blood culture positive [None]
  - Haemoglobin decreased [None]
  - Bacterial infection [None]
  - Hypoxia [None]
  - Hypotension [None]
  - Blood lactic acid increased [None]
  - Brain natriuretic peptide increased [None]
  - White blood cell count decreased [None]
  - Platelet count decreased [None]
  - Blood creatinine increased [None]
  - Blood bilirubin increased [None]

NARRATIVE: CASE EVENT DATE: 20221114
